FAERS Safety Report 8724906 (Version 2)
Quarter: 2015Q3

REPORT INFORMATION
  Report Type: Report from Study
  Country: US (occurrence: US)
  Receive Date: 20120815
  Receipt Date: 20150910
  Transmission Date: 20151125
  Serious: Yes (Hospitalization)
  Sender: FDA-Public Use
  Company Number: US-ROCHE-1099874

PATIENT
  Sex: Male

DRUGS (5)
  1. LIDOCAINE. [Concomitant]
     Active Substance: LIDOCAINE
     Route: 042
  2. ACTIVASE [Suspect]
     Active Substance: ALTEPLASE
     Indication: ACUTE MYOCARDIAL INFARCTION
     Dosage: 10 MG BOLUS WITH 50 MG OVER NEXT 1 HOUR AND WITH PLAN TO GIVE 20 MG PER HOUR OVER NEXT 2 HOUR
     Route: 040
  3. NITROGLYCERIN DRIP [Concomitant]
     Route: 060
  4. HEPARIN [Concomitant]
     Active Substance: HEPARIN SODIUM
     Route: 065
  5. NITROGLYCERIN DRIP [Concomitant]
     Route: 065

REACTIONS (2)
  - Chest discomfort [Recovering/Resolving]
  - Electrocardiogram ST segment elevation [Recovering/Resolving]
